FAERS Safety Report 7768894-X (Version None)
Quarter: 2011Q3

REPORT INFORMATION
  Report Type: 
  Country: None (occurrence: None)
  Receive Date: 20110922
  Receipt Date: 20110701
  Transmission Date: 20111222
  Serious: No
  Sender: FDA-Public Use
  Company Number: US-ASTRAZENECA-2011SE37990

PATIENT
  Age: 50 Year
  Sex: Female

DRUGS (2)
  1. SEROQUEL [Suspect]
     Indication: DEPRESSION
     Route: 048
  2. SEROQUEL [Suspect]
     Dosage: 25 MG TABLET IN TO HALF 12.5 MG AND 100 MGS IN QUARTERS TO GET TO THE 12.5 MGS
     Route: 048

REACTIONS (4)
  - HYPERSOMNIA [None]
  - DRUG INTOLERANCE [None]
  - WRONG TECHNIQUE IN DRUG USAGE PROCESS [None]
  - FEELING ABNORMAL [None]
